FAERS Safety Report 4351516-8 (Version None)
Quarter: 2004Q2

REPORT INFORMATION
  Report Type: 
  Country: None (occurrence: None)
  Receive Date: 20040428
  Receipt Date: 20040413
  Transmission Date: 20050107
  Serious: Yes (Other)
  Sender: FDA-Public Use
  Company Number: 2004-BP-02899BP

PATIENT
  Age: 57 Year
  Sex: Female

DRUGS (4)
  1. MIRAPEX [Suspect]
     Indication: PARKINSON'S DISEASE
     Dosage: 4.5 MG - 3 MG (SEE TEXT, 1.5 MG - 1MG TID), PO
     Route: 048
     Dates: start: 19980501, end: 20031201
  2. ARTANE [Concomitant]
  3. SINEMET [Concomitant]
  4. SINEMET CR [Concomitant]

REACTIONS (3)
  - AGGRESSION [None]
  - ANGER [None]
  - OBSESSIVE-COMPULSIVE DISORDER [None]
